FAERS Safety Report 19733350 (Version 4)
Quarter: 2021Q4

REPORT INFORMATION
  Report Type: Spontaneous
  Country: FR (occurrence: FR)
  Receive Date: 20210823
  Receipt Date: 20211114
  Transmission Date: 20220303
  Serious: Yes (Other)
  Sender: FDA-Public Use
  Company Number: FR-MLMSERVICE-20210804-3033209-1

PATIENT
  Age: 49 Year
  Sex: Female

DRUGS (4)
  1. EPIRUBICIN [Suspect]
     Active Substance: EPIRUBICIN
     Indication: Lobular breast carcinoma in situ
     Dosage: UNK
     Route: 065
  2. PACLITAXEL [Suspect]
     Active Substance: PACLITAXEL
     Indication: Lobular breast carcinoma in situ
     Dosage: UNK
     Route: 065
  3. TAMOXIFEN [Suspect]
     Active Substance: TAMOXIFEN
     Indication: Invasive lobular breast carcinoma
     Dosage: 1.2 GRAM, TOTAL (20 MG PER DAY)
     Route: 065
     Dates: start: 201912, end: 202002
  4. CYCLOPHOSPHAMIDE [Concomitant]
     Active Substance: CYCLOPHOSPHAMIDE
     Indication: Lobular breast carcinoma in situ
     Dosage: UNK
     Route: 065

REACTIONS (3)
  - Retinopathy [Recovered/Resolved]
  - Uveitis [Recovered/Resolved]
  - Optic neuritis [Recovered/Resolved]

NARRATIVE: CASE EVENT DATE: 20200101
